FAERS Safety Report 5718087-2 (Version None)
Quarter: 2008Q2

REPORT INFORMATION
  Report Type: 
  Country: None (occurrence: None)
  Receive Date: 20080425
  Receipt Date: 20080415
  Transmission Date: 20081010
  Serious: Yes (Hospitalization)
  Sender: FDA-Public Use
  Company Number: US-MERCK-0705USA05575

PATIENT
  Age: 59 Year
  Sex: Female

DRUGS (1)
  1. FOSAMAX PLUS D [Suspect]
     Indication: OSTEOPOROSIS
     Route: 048
     Dates: start: 20050301, end: 20050801

REACTIONS (9)
  - BREAST CANCER RECURRENT [None]
  - ELECTROLYTE IMBALANCE [None]
  - HYPERTENSION [None]
  - JAW DISORDER [None]
  - NECK PAIN [None]
  - PAIN IN JAW [None]
  - PARAESTHESIA [None]
  - SWELLING [None]
  - TRISMUS [None]
